FAERS Safety Report 18331587 (Version 2)
Quarter: 2021Q1

REPORT INFORMATION
  Report Type: Spontaneous
  Country: US (occurrence: US)
  Receive Date: 20200930
  Receipt Date: 20210104
  Transmission Date: 20210419
  Serious: Yes (Death, Life-Threatening, Disabling, Other)
  Sender: FDA-Public Use
  Company Number: US-PURDUE-USA-2020-0165547

PATIENT
  Age: 51 Year
  Sex: Male

DRUGS (6)
  1. VICODIN HP [Suspect]
     Active Substance: ACETAMINOPHEN\HYDROCODONE BITARTRATE
     Indication: ANXIETY
     Dosage: 10/300 MG QID
     Route: 048
     Dates: start: 20140801, end: 201502
  2. KLONOPIN [Suspect]
     Active Substance: CLONAZEPAM
     Indication: ANXIETY
     Dosage: 2 MG, TID
     Route: 048
     Dates: start: 2013, end: 20150228
  3. HYDROCODONE BITARTRATE AND ACETAMINOPHEN [Suspect]
     Active Substance: ACETAMINOPHEN\HYDROCODONE BITARTRATE
     Indication: PRODUCT USED FOR UNKNOWN INDICATION
     Dosage: UNK
     Route: 048
  4. HYDROCODONE BITARTRATE (SIMILAR TO NDA 206627) [Suspect]
     Active Substance: HYDROCODONE BITARTRATE
     Indication: BACK PAIN
     Dosage: UNK
     Route: 048
     Dates: start: 2010, end: 201504
  5. VICODIN HP [Suspect]
     Active Substance: ACETAMINOPHEN\HYDROCODONE BITARTRATE
     Indication: DEPRESSION
  6. DIAZEPAM. [Suspect]
     Active Substance: DIAZEPAM
     Indication: ANXIETY
     Dosage: 30 MG, QD
     Route: 048
     Dates: start: 20140801, end: 20161122

REACTIONS (11)
  - Constipation [Unknown]
  - Depression [Not Recovered/Not Resolved]
  - Sleep deficit [Unknown]
  - Intentional overdose [Fatal]
  - Overdose [Unknown]
  - Schizophrenia [Not Recovered/Not Resolved]
  - Head injury [Recovered/Resolved]
  - Anxiety [Not Recovered/Not Resolved]
  - Loss of consciousness [None]
  - Drug withdrawal syndrome [Unknown]
  - Drug dependence [Unknown]

NARRATIVE: CASE EVENT DATE: 2013
